FAERS Safety Report 5926203-2 (Version None)
Quarter: 2008Q4

REPORT INFORMATION
  Report Type: 
  Country: None (occurrence: None)
  Receive Date: 20081017
  Receipt Date: 20081014
  Transmission Date: 20090506
  Serious: Yes (Other)
  Sender: FDA-Public Use
  Company Number: 035328

PATIENT
  Age: 18 Year
  Sex: Female
  Weight: 68.9 kg

DRUGS (1)
  1. PLAN B [Suspect]
     Indication: CONTRACEPTION
     Dosage: 1 TABLET, ORAL
     Route: 048
     Dates: start: 20081013, end: 20081014

REACTIONS (1)
  - CONVULSION [None]
